FAERS Safety Report 21412933 (Version 2)
Quarter: 2022Q4

REPORT INFORMATION
  Report Type: Spontaneous
  Country: US (occurrence: US)
  Receive Date: 20221005
  Receipt Date: 20221011
  Transmission Date: 20230113
  Serious: Yes (Hospitalization, Other)
  Sender: FDA-Public Use
  Company Number: US-ALLERGAN-2232476US

PATIENT
  Sex: Female

DRUGS (1)
  1. UBRELVY [Suspect]
     Active Substance: UBROGEPANT
     Indication: Product used for unknown indication

REACTIONS (12)
  - Pruritus [Recovered/Resolved]
  - Cardiac murmur [Unknown]
  - COVID-19 [Unknown]
  - Sinusitis [Not Recovered/Not Resolved]
  - Lyme disease [Unknown]
  - Urinary tract infection [Unknown]
  - Dyspnoea [Unknown]
  - Cardiomegaly [Unknown]
  - Road traffic accident [Recovered/Resolved]
  - Pneumonia [Not Recovered/Not Resolved]
  - Hospitalisation [Unknown]
  - Migraine [Not Recovered/Not Resolved]

NARRATIVE: CASE EVENT DATE: 20220101
